FAERS Safety Report 19394057 (Version 1)
Quarter: 2021Q2

REPORT INFORMATION
  Report Type: Spontaneous
  Country: US (occurrence: US)
  Receive Date: 20210609
  Receipt Date: 20210609
  Transmission Date: 20210717
  Serious: No
  Sender: FDA-Public Use
  Company Number: US-TEVA-2021-US-1918456

PATIENT
  Sex: Female

DRUGS (2)
  1. ESTRADIOL. [Suspect]
     Active Substance: ESTRADIOL
     Dosage: START DATE: DOING IT SINCE 10 YEARS
     Route: 065
  2. ESTRADIOL. [Suspect]
     Active Substance: ESTRADIOL
     Route: 065
     Dates: start: 2021

REACTIONS (2)
  - Vaginal haemorrhage [Unknown]
  - Device difficult to use [Unknown]

NARRATIVE: CASE EVENT DATE: 2021
